FAERS Safety Report 6666667-2 (Version None)
Quarter: 2010Q2

REPORT INFORMATION
  Report Type: 
  Country: None (occurrence: None)
  Receive Date: 20100405
  Receipt Date: 20100326
  Transmission Date: 20101027
  Serious: No
  Sender: FDA-Public Use
  Company Number: US-BIOGENIDEC-2010BI010797

PATIENT
  Sex: Female
  Weight: 65 kg

DRUGS (8)
  1. TYSABRI [Suspect]
     Indication: MULTIPLE SCLEROSIS
     Route: 042
     Dates: start: 20090727, end: 20100112
  2. XANAX [Concomitant]
     Route: 048
  3. LOESTRIN 1.5/30 [Concomitant]
  4. AXERT [Concomitant]
  5. REGLAN [Concomitant]
  6. OPIOID (NOS) [Concomitant]
  7. LYRICA [Concomitant]
  8. VICODIN [Concomitant]

REACTIONS (27)
  - AMNESIA [None]
  - ANXIETY [None]
  - BLADDER DYSFUNCTION [None]
  - COLOUR BLINDNESS ACQUIRED [None]
  - CONSTIPATION [None]
  - DEPRESSION [None]
  - DIZZINESS [None]
  - DRUG INEFFECTIVE [None]
  - FALL [None]
  - FATIGUE [None]
  - HEAD INJURY [None]
  - HEADACHE [None]
  - HYPERHIDROSIS [None]
  - INSOMNIA [None]
  - MULTIPLE SCLEROSIS [None]
  - MUSCLE SPASTICITY [None]
  - NECK PAIN [None]
  - NEURALGIA [None]
  - PALPITATIONS [None]
  - PANIC REACTION [None]
  - SOMNOLENCE [None]
  - TREMOR [None]
  - URINARY RETENTION [None]
  - URINARY TRACT INFECTION [None]
  - VISION BLURRED [None]
  - VITAMIN B12 DECREASED [None]
  - WEIGHT ABNORMAL [None]
